FAERS Safety Report 18022366 (Version 2)
Quarter: 2020Q3

REPORT INFORMATION
  Report Type: Report from Study
  Country: CA (occurrence: CA)
  Receive Date: 20200714
  Receipt Date: 20200807
  Transmission Date: 20201103
  Serious: Yes (Other)
  Sender: FDA-Public Use
  Company Number: CA-JNJFOC-20200510592

PATIENT
  Age: 41 Year
  Sex: Female
  Weight: 88 kg

DRUGS (3)
  1. STELARA [Suspect]
     Active Substance: USTEKINUMAB
     Indication: CROHN^S DISEASE
     Route: 042
  2. STELARA [Suspect]
     Active Substance: USTEKINUMAB
     Route: 058
     Dates: start: 20200313
  3. STELARA [Suspect]
     Active Substance: USTEKINUMAB
     Dosage: ON 29?JUL?2020, THE PATIENT RECEIVED 4TH INJECTION WITH DOSE 90 MG
     Route: 058
     Dates: start: 20200702

REACTIONS (7)
  - Dyspnoea [Recovered/Resolved]
  - Therapeutic product effect decreased [Unknown]
  - Off label use [Unknown]
  - Product use issue [Unknown]
  - Crohn^s disease [Unknown]
  - Arthritis [Not Recovered/Not Resolved]
  - Vaginal infection [Recovered/Resolved]

NARRATIVE: CASE EVENT DATE: 20200314
